FAERS Safety Report 7984127-3 (Version None)
Quarter: 2011Q4

REPORT INFORMATION
  Report Type: 
  Country: None (occurrence: None)
  Receive Date: 20111216
  Receipt Date: 20111207
  Transmission Date: 20120403
  Serious: Yes (Other)
  Sender: FDA-Public Use
  Company Number: JP-PFIZER INC-2011304451

PATIENT
  Age: 53 Year
  Sex: Female

DRUGS (8)
  1. ALENDRONATE SODIUM [Concomitant]
     Dosage: UNK
     Route: 048
  2. LANSOPRAZOLE [Concomitant]
     Dosage: UNK
     Route: 048
  3. LAXOBERON [Concomitant]
     Dosage: UNK
     Route: 048
  4. MAGMITT [Concomitant]
     Dosage: UNK
     Route: 048
  5. SULFAMETHOXAZOLE AND TRIMETHOPRIM [Concomitant]
     Dosage: UNK
     Route: 048
  6. PREDNISOLONE [Concomitant]
     Dosage: UNK
     Route: 048
  7. LIPITOR [Suspect]
     Indication: DYSLIPIDAEMIA
     Dosage: 10 MG, DAILY
     Route: 048
  8. LAC B [Concomitant]
     Dosage: UNK
     Route: 048

REACTIONS (2)
  - RETINAL HAEMORRHAGE [None]
  - OCULAR HYPERAEMIA [None]
